FAERS Safety Report 11331085 (Version 2)
Quarter: 2015Q4

REPORT INFORMATION
  Report Type: Spontaneous
  Country: FR (occurrence: FR)
  Receive Date: 20150803
  Receipt Date: 20151102
  Transmission Date: 20160304
  Serious: Yes (Hospitalization)
  Sender: FDA-Public Use
  Company Number: FR-SA-2015SA113041

PATIENT
  Age: 82 Year
  Sex: Female

DRUGS (30)
  1. AMLOR [Suspect]
     Active Substance: AMLODIPINE BESYLATE
     Route: 048
  2. LOXEN [Suspect]
     Active Substance: NICARDIPINE HYDROCHLORIDE
     Dosage: 1DF WHEN NEEDED
     Route: 048
  3. MOVICOL [Suspect]
     Active Substance: POLYETHYLENE GLYCOL 3350\POTASSIUM CHLORIDE\SODIUM BICARBONATE\SODIUM CHLORIDE
     Dosage: DOSAGE:2 DF WHEN NEEDED
     Route: 048
  4. RIFAMPICIN [Suspect]
     Active Substance: RIFAMPIN
     Indication: STAPHYLOCOCCAL INFECTION
     Route: 065
  5. BRICANYL [Suspect]
     Active Substance: TERBUTALINE SULFATE
     Route: 055
  6. AUGMENTIN [Suspect]
     Active Substance: AMOXICILLIN\CLAVULANATE POTASSIUM
     Route: 065
     Dates: start: 20150310, end: 20150310
  7. CETIRIZINE [Suspect]
     Active Substance: CETIRIZINE HYDROCHLORIDE
     Route: 048
  8. LASILIX [Suspect]
     Active Substance: FUROSEMIDE
     Route: 048
  9. CORDARONE [Suspect]
     Active Substance: AMIODARONE HYDROCHLORIDE
     Route: 048
     Dates: start: 20150310, end: 20150316
  10. GLYCEROL\PARAFFIN [Suspect]
     Active Substance: GLYCERIN\PARAFFIN
     Route: 003
     Dates: start: 20150416, end: 201507
  11. BACTRIM [Suspect]
     Active Substance: SULFAMETHOXAZOLE\TRIMETHOPRIM
     Indication: STAPHYLOCOCCAL INFECTION
     Route: 065
     Dates: start: 201503, end: 201503
  12. ZOPICLONE [Suspect]
     Active Substance: ZOPICLONE
     Route: 048
  13. DIFFU K [Suspect]
     Active Substance: POTASSIUM CHLORIDE
     Route: 048
  14. UMULINE [Suspect]
     Active Substance: INSULIN HUMAN
     Dosage: DOSAGE:ACCORDING TO BLOOD GLUCOSE(3 DAY)
     Route: 058
  15. LANTUS [Suspect]
     Active Substance: INSULIN GLARGINE
     Route: 058
  16. PARACETAMOL [Suspect]
     Active Substance: ACETAMINOPHEN
     Route: 048
  17. CIPROFLOXACIN. [Suspect]
     Active Substance: CIPROFLOXACIN
     Indication: PYELONEPHRITIS
     Dosage: PRODUCT STOP DATE MAR-2015
     Route: 042
     Dates: start: 20150316
  18. ECONAZOLE NITRATE. [Suspect]
     Active Substance: ECONAZOLE NITRATE
     Dosage: PRODUCT STOP DATE JULY 2015
     Route: 065
     Dates: start: 20150709
  19. DISCOTRINE [Suspect]
     Active Substance: NITROGLYCERIN
     Route: 003
  20. ATROVENT [Suspect]
     Active Substance: IPRATROPIUM BROMIDE
     Dosage: DAILY DOSE:3 DAY?ROUTE RESPIRATORY INHALATIONAL
     Route: 055
  21. COLCHICINE. [Suspect]
     Active Substance: COLCHICINE
     Indication: GOUT
     Route: 065
     Dates: start: 201503, end: 201503
  22. FOSFOMYCIN [Suspect]
     Active Substance: FOSFOMYCIN
     Indication: STAPHYLOCOCCAL INFECTION
     Route: 042
     Dates: start: 201503, end: 201503
  23. DIPROSONE [Suspect]
     Active Substance: BETAMETHASONE DIPROPIONATE
     Route: 003
     Dates: start: 20150416, end: 201507
  24. ROCEPHINE [Suspect]
     Active Substance: CEFTRIAXONE SODIUM
     Indication: STAPHYLOCOCCAL INFECTION
     Route: 042
     Dates: start: 201503, end: 201503
  25. FLAGYL [Suspect]
     Active Substance: METRONIDAZOLE\METRONIDAZOLE HYDROCHLORIDE
     Indication: COLITIS
     Route: 065
     Dates: start: 201503, end: 201503
  26. COUMADINE [Suspect]
     Active Substance: WARFARIN SODIUM
     Dosage: DAILY DOSE: 0.25 DF (0.5 DF , 1 IN 2 DAY)?FORM :COMPRIME SECABLE
     Route: 048
  27. TIENAM [Suspect]
     Active Substance: CILASTATIN SODIUM\IMIPENEM
     Indication: PYELONEPHRITIS
     Dosage: PRODUCT STOP DATE MAR-2015
     Route: 042
     Dates: start: 20150316
  28. CEFOXITIN [Suspect]
     Active Substance: CEFOXITIN SODIUM
     Route: 042
     Dates: start: 201503, end: 20150328
  29. MATRIFEN [Suspect]
     Active Substance: FENTANYL
     Indication: GOUT
     Route: 003
     Dates: start: 201503, end: 201503
  30. HYPERIUM [Suspect]
     Active Substance: RILMENIDINE PHOSPHATE
     Route: 048
     Dates: start: 20150316

REACTIONS (1)
  - Drug reaction with eosinophilia and systemic symptoms [Recovered/Resolved]

NARRATIVE: CASE EVENT DATE: 20150709
